FAERS Safety Report 6391845-X (Version None)
Quarter: 2009Q4

REPORT INFORMATION
  Report Type: 
  Country: None (occurrence: None)
  Receive Date: 20091005
  Receipt Date: 20090929
  Transmission Date: 20100525
  Serious: Yes (Death, Hospitalization, Other)
  Sender: FDA-Public Use
  Company Number: 2008SP020825

PATIENT
  Age: 69 Year
  Sex: Male
  Weight: 61 kg

DRUGS (16)
  1. INTRON A [Suspect]
     Indication: HEPATIC NEOPLASM MALIGNANT
     Dosage: 3 MIU;TIW;IA ; 3 MIU;TIW;IA ; 3 MIU;TIW;IA
     Dates: start: 20080507, end: 20080602
  2. INTRON A [Suspect]
     Indication: HEPATIC NEOPLASM MALIGNANT
     Dosage: 3 MIU;TIW;IA ; 3 MIU;TIW;IA ; 3 MIU;TIW;IA
     Dates: start: 20080606, end: 20080702
  3. INTRON A [Suspect]
     Indication: HEPATIC NEOPLASM MALIGNANT
     Dosage: 3 MIU;TIW;IA ; 3 MIU;TIW;IA ; 3 MIU;TIW;IA
     Dates: start: 20080709, end: 20080801
  4. FLUOROURACIL [Concomitant]
  5. AMLODIPINE [Concomitant]
  6. BLOPRESS [Concomitant]
  7. URSO 250 [Concomitant]
  8. ACINON [Concomitant]
  9. TETRAMIDE [Concomitant]
  10. LENDORMIN [Concomitant]
  11. TRYPTANOL [Concomitant]
  12. HALCION [Concomitant]
  13. PAXIL [Concomitant]
  14. ZOLOFT [Concomitant]
  15. RISPERDAL [Concomitant]
  16. HIRNAMIN (LEVOMEPROMAZINE MALEATE) [Concomitant]

REACTIONS (7)
  - CONDITION AGGRAVATED [None]
  - DELIRIUM [None]
  - ESCHERICHIA SEPSIS [None]
  - HEPATIC CIRRHOSIS [None]
  - PNEUMONIA [None]
  - PULMONARY FIBROSIS [None]
  - RESPIRATORY FAILURE [None]
